FAERS Safety Report 6432654-2 (Version None)
Quarter: 2009Q4

REPORT INFORMATION
  Report Type: 
  Country: None (occurrence: None)
  Receive Date: 20091109
  Receipt Date: 20091102
  Transmission Date: 20100525
  Serious: Yes (Death)
  Sender: FDA-Public Use
  Company Number: US-BAYER-200814796BCC

PATIENT
  Age: 16 Year
  Sex: Female

DRUGS (1)
  1. BACTINE PAIN RELIEVING CLEANSING SPRAY [Suspect]
     Indication: SUICIDAL IDEATION
     Dosage: 5 OZ BOTTLE
     Route: 048

REACTIONS (1)
  - DRUG TOXICITY [None]
